FAERS Safety Report 16465007 (Version 4)
Quarter: 2019Q4

REPORT INFORMATION
  Report Type: Other
  Country: US (occurrence: US)
  Receive Date: 20190621
  Receipt Date: 20191016
  Transmission Date: 20200122
  Serious: Yes (Life-Threatening, Other)
  Sender: FDA-Public Use
  Company Number: US-LA JOLLA PHARMACEUTICAL COMPANY-0000307

PATIENT

DRUGS (10)
  1. NOREPINEPHRINE. [Concomitant]
     Active Substance: NOREPINEPHRINE
     Dosage: 0.05-0.62 MCG/KG/MIN
     Route: 042
     Dates: start: 20190429, end: 20190430
  2. THIAMINE. [Concomitant]
     Active Substance: THIAMINE
     Dosage: UNK
  3. GIAPREZA [Suspect]
     Active Substance: ANGIOTENSIN II
     Indication: SEPTIC SHOCK
  4. GIAPREZA [Suspect]
     Active Substance: ANGIOTENSIN II
     Indication: SEPSIS
     Dosage: 10 NG/KG/MIN, UNK
     Dates: start: 20190429, end: 20190430
  5. SODIUM CHLORIDE. [Suspect]
     Active Substance: SODIUM CHLORIDE
     Indication: SEPTIC SHOCK
     Dosage: 2.5 MG IN 250 ML
  6. VASOPRESSIN. [Concomitant]
     Active Substance: VASOPRESSIN
     Dosage: 0.04 UNITS/MIN, UNK
     Route: 042
     Dates: start: 20190429, end: 20190430
  7. VITAMIN C [Concomitant]
     Active Substance: ASCORBIC ACID
     Dosage: UNK
  8. HYDROCORTISONE. [Concomitant]
     Active Substance: HYDROCORTISONE
  9. GIAPREZA [Suspect]
     Active Substance: ANGIOTENSIN II
     Indication: HYPOTENSION
  10. BICARBONATE [Concomitant]
     Active Substance: SODIUM BICARBONATE
     Dosage: UNK

REACTIONS (8)
  - Dry gangrene [Not Recovered/Not Resolved]
  - Embolism [Not Recovered/Not Resolved]
  - Peripheral artery thrombosis [Recovered/Resolved]
  - Peripheral ischaemia [Unknown]
  - Peripheral ischaemia [Unknown]
  - Haemorrhage [Unknown]
  - Peripheral artery thrombosis [Unknown]
  - Arterial thrombosis [Unknown]

NARRATIVE: CASE EVENT DATE: 201904
